FAERS Safety Report 18722097 (Version 1)
Quarter: 2021Q1

REPORT INFORMATION
  Report Type: Spontaneous
  Country: US (occurrence: US)
  Receive Date: 20210111
  Receipt Date: 20210111
  Transmission Date: 20210419
  Serious: Yes (Hospitalization, Other)
  Sender: FDA-Public Use
  Company Number: US-AUROBINDO-AUR-APL-2012-05419

PATIENT
  Age: 38 Year
  Sex: Male

DRUGS (1)
  1. TERBINAFINE. [Suspect]
     Active Substance: TERBINAFINE
     Indication: TINEA PEDIS
     Dosage: UNK
     Route: 048

REACTIONS (9)
  - Acute generalised exanthematous pustulosis [Recovering/Resolving]
  - Rash [Recovering/Resolving]
  - Pustule [Recovering/Resolving]
  - Swelling [Recovering/Resolving]
  - Skin plaque [Recovering/Resolving]
  - Rash pruritic [Recovering/Resolving]
  - Pain [Recovering/Resolving]
  - Rash erythematous [Recovering/Resolving]
  - Oedema peripheral [Recovering/Resolving]
